FAERS Safety Report 12095533 (Version 3)
Quarter: 2016Q1

REPORT INFORMATION
  Report Type: Spontaneous
  Country: JP (occurrence: JP)
  Receive Date: 20160219
  Receipt Date: 20160329
  Transmission Date: 20160526
  Serious: Yes (Other)
  Sender: FDA-Public Use
  Company Number: JP-ABBVIE-16P-087-1560781-00

PATIENT
  Age: 31 Year
  Sex: Male

DRUGS (5)
  1. RIBAVIRIN. [Concomitant]
     Active Substance: RIBAVIRIN
     Indication: HEPATITIS C
     Route: 065
  2. PEGINTERFERON ALFA-2B [Suspect]
     Active Substance: PEGINTERFERON ALFA-2B
     Indication: HEPATITIS C
     Route: 065
  3. D4T [Concomitant]
     Active Substance: STAVUDINE
     Indication: HIV INFECTION
  4. KALETRA [Suspect]
     Active Substance: LOPINAVIR\RITONAVIR
     Indication: HIV INFECTION
     Route: 048
  5. 3TC [Concomitant]
     Active Substance: LAMIVUDINE
     Indication: HIV INFECTION

REACTIONS (2)
  - Muscle haemorrhage [Unknown]
  - Platelet count decreased [Unknown]
